FAERS Safety Report 9087526 (Version 1)
Quarter: 2013Q1

REPORT INFORMATION
  Report Type: Report from Study
  Country: US (occurrence: US)
  Receive Date: 20130201
  Receipt Date: 20130201
  Transmission Date: 20140127
  Serious: No
  Sender: FDA-Public Use
  Company Number: US-ABBOTT-12P-163-1025080-00

PATIENT
  Age: 61 Year
  Sex: Female

DRUGS (2)
  1. HUMIRA [Suspect]
     Indication: RHEUMATOID ARTHRITIS
     Dates: start: 200601, end: 20121015
  2. HUMIRA [Suspect]
     Indication: PSORIASIS

REACTIONS (2)
  - Eye swelling [Recovered/Resolved]
  - Herpes zoster [Recovering/Resolving]
